FAERS Safety Report 23060102 (Version 1)
Quarter: 2023Q4

REPORT INFORMATION
  Report Type: Spontaneous
  Country: CA (occurrence: CA)
  Receive Date: 20231012
  Receipt Date: 20231012
  Transmission Date: 20240109
  Serious: Yes (Death)
  Sender: FDA-Public Use
  Company Number: CA-FreseniusKabi-FK202316220

PATIENT
  Age: 78 Year
  Sex: Male

DRUGS (1)
  1. HEPARIN SODIUM [Suspect]
     Active Substance: HEPARIN SODIUM
     Indication: Product used for unknown indication
     Dosage: DOSAGE FORM: SOLUTION INTRAVENOUS

REACTIONS (6)
  - Coma [Fatal]
  - Accidental death [Fatal]
  - Cerebral haemorrhage [Fatal]
  - General physical health deterioration [Fatal]
  - Pneumonia [Fatal]
  - Subdural haematoma [Fatal]
